FAERS Safety Report 24674779 (Version 2)
Quarter: 2025Q1

REPORT INFORMATION
  Report Type: Spontaneous
  Country: FR (occurrence: FR)
  Receive Date: 20241128
  Receipt Date: 20250116
  Transmission Date: 20250409
  Serious: Yes (Life-Threatening)
  Sender: ABBVIE
  Company Number: None

PATIENT
  Age: 47 Year
  Sex: Female

DRUGS (2)
  1. RINVOQ [Suspect]
     Active Substance: UPADACITINIB
     Indication: Dyshidrotic eczema
     Dosage: RINVOQ 30 MG 1 DOSAGE FORM
     Route: 048
     Dates: start: 20241007, end: 20241015
  2. DYDROGESTERONE\ESTRADIOL [Suspect]
     Active Substance: DYDROGESTERONE\ESTRADIOL
     Indication: Hormone level abnormal
     Dosage: 2 MG/10 MG, FILM-COATED TABLETS
     Route: 048
     Dates: start: 20160329

REACTIONS (1)
  - Aortic dissection [Recovering/Resolving]

NARRATIVE: CASE EVENT DATE: 20241015
